FAERS Safety Report 7560040-0 (Version None)
Quarter: 2011Q2

REPORT INFORMATION
  Report Type: 
  Country: None (occurrence: None)
  Receive Date: 20110621
  Receipt Date: 20110616
  Transmission Date: 20111010
  Serious: Yes (Death, Hospitalization)
  Sender: FDA-Public Use
  Company Number: PHHY2011DE53897

PATIENT
  Age: 63 Year
  Sex: Male
  Weight: 64 kg

DRUGS (5)
  1. CORTICOSTEROIDS [Suspect]
     Dosage: 20 MG/DAY
  2. BASILIXIMAB [Suspect]
     Indication: LIVER TRANSPLANT
     Dosage: 2 DF, UNK
  3. METHYLPREDNISOLONE [Suspect]
     Indication: LIVER TRANSPLANT
     Dosage: 1 G, UNK
  4. CYCLOSPORINE [Suspect]
     Indication: LIVER TRANSPLANT
  5. CORTICOSTEROIDS [Suspect]
     Dosage: 12 MG/DAY

REACTIONS (22)
  - ASCITES [None]
  - MULTIPLE-DRUG RESISTANCE [None]
  - ENDOCARDITIS BACTERIAL [None]
  - CARDIOVASCULAR DISORDER [None]
  - BODY TEMPERATURE DECREASED [None]
  - CITROBACTER TEST POSITIVE [None]
  - INTRA-ABDOMINAL HAEMATOMA [None]
  - NEUTROPENIA [None]
  - PULMONARY OEDEMA [None]
  - MULTI-ORGAN FAILURE [None]
  - ASPERGILLOSIS [None]
  - PLEURAL EFFUSION [None]
  - STAPHYLOCOCCAL INFECTION [None]
  - SHOCK HAEMORRHAGIC [None]
  - KLEBSIELLA TEST POSITIVE [None]
  - HEPATIC ENZYME INCREASED [None]
  - LIVER INJURY [None]
  - CHOLESTASIS [None]
  - LUNG DISORDER [None]
  - RENAL FAILURE [None]
  - GASTROINTESTINAL HAEMORRHAGE [None]
  - PNEUMONIA [None]
